FAERS Safety Report 7948661-4 (Version None)
Quarter: 2011Q4

REPORT INFORMATION
  Report Type: 
  Country: None (occurrence: None)
  Receive Date: 20111130
  Receipt Date: 20111130
  Transmission Date: 20120403
  Serious: Yes (Death)
  Sender: FDA-Public Use
  Company Number: None

PATIENT
  Age: 62 Year
  Sex: Female
  Weight: 78.471 kg

DRUGS (2)
  1. REMICADE [Suspect]
     Indication: CROHN'S DISEASE
     Dosage: UNKNOWN
     Dates: start: 20060201, end: 20100601
  2. IMURAN [Concomitant]
     Indication: CROHN'S DISEASE
     Dosage: 50 MG
     Route: 048

REACTIONS (1)
  - HEPATOSPLENIC T-CELL LYMPHOMA [None]
